FAERS Safety Report 8231208-5 (Version None)
Quarter: 2012Q1

REPORT INFORMATION
  Report Type: 
  Country: None (occurrence: None)
  Receive Date: 20120323
  Receipt Date: 20120323
  Transmission Date: 20120608
  Serious: Yes (Death)
  Sender: FDA-Public Use
  Company Number: None

PATIENT
  Age: 7 Year
  Sex: Male
  Weight: 26 kg

DRUGS (1)
  1. BACTRIM [Suspect]
     Indication: EAR INFECTION
     Dosage: 3 TSP
     Route: 048
     Dates: start: 20120214, end: 20120220

REACTIONS (5)
  - VOMITING [None]
  - CARDIAC ARREST [None]
  - ERYTHEMA INFECTIOSUM [None]
  - NAUSEA [None]
  - CONVULSION [None]
